FAERS Safety Report 25308107 (Version 3)
Quarter: 2025Q2

REPORT INFORMATION
  Report Type: Spontaneous
  Country: US (occurrence: US)
  Receive Date: 20250513
  Receipt Date: 20250616
  Transmission Date: 20250716
  Serious: Yes (Death, Life-Threatening, Hospitalization, Other)
  Sender: VERTEX
  Company Number: US-VERTEX PHARMACEUTICALS-2025-007761

PATIENT
  Age: 40 Year
  Sex: Female

DRUGS (35)
  1. TRIKAFTA [Suspect]
     Active Substance: ELEXACAFTOR\IVACAFTOR\TEZACAFTOR
     Indication: Cystic fibrosis
     Dosage: 2 MORNING TABLETS IN MONDAY AND THURSDAY, NO EVENING TABS
     Route: 048
     Dates: start: 20231213, end: 20250609
  2. ZYRTEC [Concomitant]
     Active Substance: CETIRIZINE HYDROCHLORIDE
  3. FERROUS SULFATE [Concomitant]
     Active Substance: FERROUS SULFATE
  4. TACROLIMUS [Concomitant]
     Active Substance: TACROLIMUS
  5. URSODIOL [Concomitant]
     Active Substance: URSODIOL
  6. VITAMIN D3 [Concomitant]
     Active Substance: CHOLECALCIFEROL
  7. ACETAMINOPHEN [Concomitant]
     Active Substance: ACETAMINOPHEN
  8. GABAPENTIN [Concomitant]
     Active Substance: GABAPENTIN
  9. ZENPEP [Concomitant]
     Active Substance: PANCRELIPASE AMYLASE\PANCRELIPASE LIPASE\PANCRELIPASE PROTEASE
  10. ACYCLOVIR [Concomitant]
     Active Substance: ACYCLOVIR
  11. HYDROXYZINE [Concomitant]
     Active Substance: HYDROXYZINE HYDROCHLORIDE
  12. IBANDRONATE SODIUM [Concomitant]
     Active Substance: IBANDRONATE SODIUM
  13. ALBUTEROL SULFATE [Concomitant]
     Active Substance: ALBUTEROL SULFATE
  14. INSULIN ASPART [Concomitant]
     Active Substance: INSULIN ASPART
  15. NOVOLOG [Concomitant]
     Active Substance: INSULIN ASPART
  16. AMOXICILLIN [Concomitant]
     Active Substance: AMOXICILLIN
  17. ITRACONAZOLE [Concomitant]
     Active Substance: ITRACONAZOLE
  18. AZITHROMYCIN [Concomitant]
     Active Substance: AZITHROMYCIN
  19. LANSOPRAZOLE [Concomitant]
     Active Substance: LANSOPRAZOLE
  20. BAQSIMI [Concomitant]
     Active Substance: GLUCAGON
     Route: 045
  21. KETOCONAZOLE [Concomitant]
     Active Substance: KETOCONAZOLE
  22. BUDESONIDE [Concomitant]
     Active Substance: BUDESONIDE
  23. LEVOTHYROXINE [Concomitant]
     Active Substance: LEVOTHYROXINE
  24. CLOBETASOL PROPIONATE [Concomitant]
     Active Substance: CLOBETASOL PROPIONATE
  25. METOPROLOL TARTRATE [Concomitant]
     Active Substance: METOPROLOL TARTRATE
  26. MG Plus Protein [Concomitant]
  27. ELIQUIS [Concomitant]
     Active Substance: APIXABAN
  28. MONTELUKAST [Concomitant]
     Active Substance: MONTELUKAST
  29. ESCITALOPRAM [Concomitant]
     Active Substance: ESCITALOPRAM OXALATE
  30. OPZELURA [Concomitant]
     Active Substance: RUXOLITINIB PHOSPHATE
     Route: 061
  31. EVEROLIMUS [Concomitant]
     Active Substance: EVEROLIMUS
  32. PREDNISONE [Concomitant]
     Active Substance: PREDNISONE
  33. FAMOTIDINE [Concomitant]
     Active Substance: FAMOTIDINE
  34. SULFAMETHOXAZOLE AND TRIMETHOPRIM [Concomitant]
     Active Substance: SULFAMETHOXAZOLE\TRIMETHOPRIM
  35. ADVAIR HFA [Concomitant]
     Active Substance: FLUTICASONE PROPIONATE\SALMETEROL XINAFOATE

REACTIONS (4)
  - Lung transplant [Unknown]
  - Respiratory failure [Fatal]
  - Hepatic failure [Fatal]
  - Neoplasm malignant [Recovered/Resolved]

NARRATIVE: CASE EVENT DATE: 20250115
